FAERS Safety Report 4650517-X (Version None)
Quarter: 2005Q2

REPORT INFORMATION
  Report Type: 
  Country: None (occurrence: None)
  Receive Date: 20050429
  Receipt Date: 20050421
  Transmission Date: 20051028
  Serious: Yes (Death)
  Sender: FDA-Public Use
  Company Number: 2004S1003546

PATIENT
  Age: 9 Year
  Sex: Male

DRUGS (3)
  1. CYSTAGON [Suspect]
     Indication: CYSTINOSIS
     Dosage: 400MG QD, THEN 600MG, QD, THEN 800MG QD, ORAL
     Route: 048
     Dates: start: 19960501, end: 20030101
  2. CYSTAGON [Suspect]
     Indication: CYSTINOSIS
     Dosage: 400MG QD, THEN 600MG, QD, THEN 800MG QD, ORAL
     Route: 048
     Dates: start: 20040301, end: 20041101
  3. CALCIUM GLUCONATE [Concomitant]

REACTIONS (9)
  - CEREBRAL ISCHAEMIA [None]
  - COMPLEMENT FACTOR C3 DECREASED [None]
  - EHLERS-DANLOS SYNDROME [None]
  - LOWER LIMB FRACTURE [None]
  - MUSCULAR WEAKNESS [None]
  - OSTEOPENIA [None]
  - PETECHIAE [None]
  - SKIN LESION [None]
  - SKIN STRIAE [None]
